FAERS Safety Report 9947120 (Version 1)
Quarter: 2014Q1

REPORT INFORMATION
  Report Type: Report from Study
  Country: US (occurrence: US)
  Receive Date: 20140303
  Receipt Date: 20140303
  Transmission Date: 20141002
  Serious: No
  Sender: FDA-Public Use
  Company Number: US-ABBVIE-13P-163-1064056-00

PATIENT
  Age: 72 Year
  Sex: Female

DRUGS (5)
  1. HUMIRA [Suspect]
     Indication: COLITIS ULCERATIVE
     Route: 058
     Dates: start: 20130118
  2. HUMIRA [Suspect]
     Dates: start: 20130202
  3. HUMIRA [Suspect]
  4. STARLIX [Concomitant]
     Indication: BLOOD GLUCOSE
  5. UNKNOWN PILL [Concomitant]
     Indication: BLOOD CHOLESTEROL

REACTIONS (3)
  - Haematochezia [Not Recovered/Not Resolved]
  - Mucous stools [Not Recovered/Not Resolved]
  - Colitis ulcerative [Not Recovered/Not Resolved]
